FAERS Safety Report 14047445 (Version 3)
Quarter: 2018Q1

REPORT INFORMATION
  Report Type: Report from Study
  Country: US (occurrence: US)
  Receive Date: 20171005
  Receipt Date: 20180130
  Transmission Date: 20180508
  Serious: Yes (Death, Hospitalization, Other)
  Sender: FDA-Public Use
  Company Number: US-GILEAD-2017-0296289

PATIENT
  Sex: Male

DRUGS (5)
  1. SENNA                              /00142201/ [Concomitant]
     Active Substance: SENNA LEAF
  2. HALDOL [Concomitant]
     Active Substance: HALOPERIDOL
  3. MORPHINE [Concomitant]
     Active Substance: MORPHINE
  4. RANOLAZINE. [Suspect]
     Active Substance: RANOLAZINE
     Indication: VENTRICULAR ARRHYTHMIA
     Dosage: UNK
     Route: 065
     Dates: end: 20150619
  5. DEXAMETHASONE. [Concomitant]
     Active Substance: DEXAMETHASONE

REACTIONS (5)
  - Hypotension [Unknown]
  - Ventricular tachycardia [Unknown]
  - Cardiac failure [Unknown]
  - Death [Fatal]
  - Neoplasm malignant [Unknown]
